FAERS Safety Report 6729102-1 (Version None)
Quarter: 2010Q2

REPORT INFORMATION
  Report Type: 
  Country: None (occurrence: None)
  Receive Date: 20100517
  Receipt Date: 20100329
  Transmission Date: 20101027
  Serious: No
  Sender: FDA-Public Use
  Company Number: US-ABBOTT-10P-163-0635164-00

PATIENT
  Sex: Female
  Weight: 90.8 kg

DRUGS (18)
  1. SIMCOR [Suspect]
     Indication: BLOOD CHOLESTEROL INCREASED
     Dosage: 1000/20MG
     Dates: start: 20090301
  2. SIMCOR [Suspect]
     Indication: HIGH DENSITY LIPOPROTEIN DECREASED
  3. UNKNOWN BLOOD PRESSURE MEDICATIONS [Concomitant]
     Indication: BLOOD PRESSURE
  4. UNKNOWN THYROID MEDICATION [Concomitant]
     Indication: THYROID DISORDER
  5. UNKNOWN ANTI-DEPRESSANT MEDICATION [Concomitant]
     Indication: ANTIDEPRESSANT THERAPY
  6. UNKNOWN SHORTNESS OF BREATH MEDICATION [Concomitant]
     Indication: DYSPNOEA
  7. ACTOS [Concomitant]
     Indication: DRUG USE FOR UNKNOWN INDICATION
  8. METFORMIN HYDROCHLORIDE [Concomitant]
     Indication: DRUG USE FOR UNKNOWN INDICATION
  9. GARLIQUE [Concomitant]
     Indication: DRUG USE FOR UNKNOWN INDICATION
  10. BEE POLLEN [Concomitant]
     Indication: DRUG USE FOR UNKNOWN INDICATION
  11. DITROPAN [Concomitant]
     Indication: DRUG USE FOR UNKNOWN INDICATION
  12. MULTI-VITAMIN [Concomitant]
     Indication: DRUG USE FOR UNKNOWN INDICATION
  13. HAIR AND NAIL VITAMIN [Concomitant]
     Indication: DRUG USE FOR UNKNOWN INDICATION
  14. VITAMIN B-12 [Concomitant]
     Indication: DRUG USE FOR UNKNOWN INDICATION
  15. VITAMIN D [Concomitant]
     Indication: DRUG USE FOR UNKNOWN INDICATION
  16. VIT C [Concomitant]
     Indication: DRUG USE FOR UNKNOWN INDICATION
  17. ZINC [Concomitant]
     Indication: DRUG USE FOR UNKNOWN INDICATION
  18. FOLIC ACID [Concomitant]
     Indication: DRUG USE FOR UNKNOWN INDICATION

REACTIONS (4)
  - ERYTHEMA [None]
  - FEELING HOT [None]
  - FLUSHING [None]
  - PRURITUS [None]
